FAERS Safety Report 20310608 (Version 1)
Quarter: 2022Q1

REPORT INFORMATION
  Report Type: Spontaneous
  Country: US (occurrence: None)
  Receive Date: 20220107
  Receipt Date: 20220107
  Transmission Date: 20220423
  Serious: Yes (Other)
  Sender: FDA-Public Use
  Company Number: None

PATIENT
  Sex: Female
  Weight: 56.25 kg

DRUGS (1)
  1. KYLEENA [Suspect]
     Active Substance: LEVONORGESTREL
     Indication: Contraception
     Dosage: OTHER QUANTITY : 1 IUD;?
     Route: 067
     Dates: start: 20180105, end: 20201215

REACTIONS (4)
  - Depression [None]
  - Anxiety [None]
  - Mood altered [None]
  - Heavy menstrual bleeding [None]
